FAERS Safety Report 6487433-7 (Version None)
Quarter: 2009Q4

REPORT INFORMATION
  Report Type: 
  Country: None (occurrence: None)
  Receive Date: 20091209
  Receipt Date: 20091209
  Transmission Date: 20100525
  Serious: Yes (Other)
  Sender: FDA-Public Use
  Company Number: None

PATIENT
  Age: 38 Year
  Sex: Female
  Weight: 69.4003 kg

DRUGS (2)
  1. ENBREL [Suspect]
     Indication: ANKYLOSING SPONDYLITIS
  2. ENBREL [Suspect]
     Indication: PSORIATIC ARTHROPATHY

REACTIONS (6)
  - CONDITION AGGRAVATED [None]
  - ERYTHEMA [None]
  - IMMEDIATE POST-INJECTION REACTION [None]
  - PRURITUS [None]
  - PUSTULAR PSORIASIS [None]
  - SKIN SWELLING [None]
